FAERS Safety Report 8579995-0 (Version None)
Quarter: 2012Q3

REPORT INFORMATION
  Report Type: 
  Country: None (occurrence: None)
  Receive Date: 20120808
  Receipt Date: 20120801
  Transmission Date: 20120928
  Serious: Yes (Death)
  Sender: FDA-Public Use
  Company Number: FR-NAPPMUNDI-GBR-2012-0011162

PATIENT
  Sex: Female

DRUGS (15)
  1. FOLIC ACID [Suspect]
     Indication: FOLATE DEFICIENCY
     Dosage: UNK
     Route: 048
     Dates: start: 20120619, end: 20120629
  2. CYMBALTA [Suspect]
     Indication: ANXIETY
     Dosage: 60 MG, DAILY
     Route: 048
     Dates: start: 20120626, end: 20120629
  3. ROCEPHIN [Suspect]
     Indication: LUNG INFECTION
     Dosage: UNK
     Route: 065
     Dates: start: 20120618, end: 20120629
  4. FUROSEMIDE [Concomitant]
  5. LOVENOX [Suspect]
     Indication: PROPHYLAXIS
     Dosage: UNK
     Route: 065
     Dates: start: 20120618, end: 20120630
  6. TRAMADOL HYDROCHLORIDE [Concomitant]
  7. CALCIDOSE                          /00751519/ [Concomitant]
  8. POTASSIUM CHLORIDE [Concomitant]
  9. NEXIUM [Concomitant]
  10. ACETAMINOPHEN [Concomitant]
  11. ASPIRIN [Concomitant]
  12. GAVISCON [Concomitant]
  13. ALPRAZOLAM [Concomitant]
  14. OXYCODONE HYDROCHLORIDE [Suspect]
     Indication: ABDOMINAL PAIN
     Dosage: UNK MG, UNK
     Route: 048
     Dates: start: 20120618, end: 20120629
  15. TRANSIPEG                          /00754501/ [Concomitant]

REACTIONS (3)
  - CYTOLYTIC HEPATITIS [None]
  - OCULAR ICTERUS [None]
  - PYREXIA [None]
